FAERS Safety Report 14447092 (Version 1)
Quarter: 2018Q1

REPORT INFORMATION
  Report Type: Report from Study
  Country: US (occurrence: US)
  Receive Date: 20180126
  Receipt Date: 20180126
  Transmission Date: 20180509
  Serious: Yes (Other)
  Sender: FDA-Public Use
  Company Number: US-PFIZER INC-2018022948

PATIENT

DRUGS (6)
  1. QUIZARTINIB [Suspect]
     Active Substance: QUIZARTINIB
     Indication: ACUTE MYELOID LEUKAEMIA
     Dosage: 60 MG, DAILY (ON DAYS 4 THROUGH 17 OF INDUCTION)
     Route: 048
  2. CYTARABINE. [Suspect]
     Active Substance: CYTARABINE
     Dosage: UNK, DAILY (3 G/M2/D OVER 3 HOURS EVERY 12 HOURS ON DAYS 1, 3, AND 5)
     Route: 042
  3. QUIZARTINIB [Suspect]
     Active Substance: QUIZARTINIB
     Dosage: 40 MG DAILY (ON DAYS 4 THROUGH 17 OF INDUCTION THIRD DOSE LEVEL TESTED
     Route: 048
  4. DAUNORUBICIN [Suspect]
     Active Substance: DAUNORUBICIN
     Indication: ACUTE MYELOID LEUKAEMIA
     Dosage: 60 MG/M2, DAILY (INTRAVENOUS INFUSION OR IV PUSH OVER APPROXIMATELY 15 MINUTES ON DAYS 1 THROUGH 3)
     Route: 042
  5. CYTARABINE. [Suspect]
     Active Substance: CYTARABINE
     Indication: ACUTE MYELOID LEUKAEMIA
     Dosage: 200 MG/M2, DAILY (ON DAYS 1 THROUGH 7)
     Route: 042
  6. QUIZARTINIB [Suspect]
     Active Substance: QUIZARTINIB
     Dosage: 60 MG DAILY (ON DAYS 4 THROUGH 17 OF INDUCTION NEXT DOSE TESTED
     Route: 048

REACTIONS (1)
  - Cardiac tamponade [Unknown]
